FAERS Safety Report 7883506-2 (Version None)
Quarter: 2011Q4

REPORT INFORMATION
  Report Type: 
  Country: None (occurrence: None)
  Receive Date: 20111031
  Receipt Date: 20111025
  Transmission Date: 20120403
  Serious: Yes (Death)
  Sender: FDA-Public Use
  Company Number: 1000024663

PATIENT
  Age: 85 Year
  Sex: Male
  Weight: 65 kg

DRUGS (3)
  1. ARICEPT [Concomitant]
  2. MEMANTINE HYDROCHLORIDE [Suspect]
     Indication: DEMENTIA ALZHEIMER'S TYPE
     Dosage: 20 MG (20 MG, 1 IN 1 D), ORAL
     Route: 048
     Dates: start: 20110823
  3. DEPAS (ETIZOLAM) (ETIZOLAM) [Concomitant]

REACTIONS (6)
  - GAIT DISTURBANCE [None]
  - CEREBRAL INFARCTION [None]
  - HAEMORRHAGE [None]
  - FALL [None]
  - PELVIC FRACTURE [None]
  - ARTERIAL RUPTURE [None]
